FAERS Safety Report 5393830-3 (Version None)
Quarter: 2007Q3

REPORT INFORMATION
  Report Type: 
  Country: None (occurrence: None)
  Receive Date: 20070719
  Receipt Date: 20070719
  Transmission Date: 20080115
  Serious: Yes (Hospitalization)
  Sender: FDA-Public Use
  Company Number: None

PATIENT
  Age: 8 Year
  Sex: Female
  Weight: 26 kg

DRUGS (9)
  1. VANCOMYCIN [Suspect]
     Indication: STAPHYLOCOCCAL INFECTION
     Dosage: 430MG Q8H IV
     Route: 042
     Dates: start: 20070518, end: 20070526
  2. CREON [Concomitant]
  3. ADVAIR DISKUS 250/50 [Concomitant]
  4. ALBUTEROL HFA [Concomitant]
  5. PULMOZYME [Concomitant]
  6. TOBRAMYCIN [Concomitant]
  7. CETIRIZINE HCL [Concomitant]
  8. MONTELUKAST SODIUM [Concomitant]
  9. STRATTERA [Concomitant]

REACTIONS (6)
  - CONDITION AGGRAVATED [None]
  - FLUSHING [None]
  - INFUSION RELATED REACTION [None]
  - PRURITUS GENERALISED [None]
  - RASH [None]
  - RED MAN SYNDROME [None]
